FAERS Safety Report 9247068 (Version 2)
Quarter: 2013Q2

REPORT INFORMATION
  Report Type: Spontaneous
  Country: US (occurrence: US)
  Receive Date: 20130423
  Receipt Date: 20130513
  Transmission Date: 20140414
  Serious: Yes (Other)
  Sender: FDA-Public Use
  Company Number: US-BIOGENIDEC-2013BI035154

PATIENT
  Age: 57 Year
  Sex: Female

DRUGS (4)
  1. TYSABRI [Suspect]
     Indication: MULTIPLE SCLEROSIS
     Route: 042
     Dates: start: 20071008
  2. LIPITOR [Concomitant]
  3. VITAMIN D [Concomitant]
  4. ASPIRIN [Concomitant]
     Route: 048

REACTIONS (1)
  - Transitional cell carcinoma [Unknown]
